FAERS Safety Report 18434225 (Version 1)
Quarter: 2020Q4

REPORT INFORMATION
  Report Type: Spontaneous
  Country: IT (occurrence: IT)
  Receive Date: 20201028
  Receipt Date: 20201028
  Transmission Date: 20210114
  Serious: Yes (Hospitalization)
  Sender: FDA-Public Use
  Company Number: IT-SUN PHARMACEUTICAL INDUSTRIES LTD-2020RR-265553

PATIENT
  Age: 53 Year
  Sex: Female

DRUGS (14)
  1. FLUOROURACIL. [Suspect]
     Active Substance: FLUOROURACIL
     Indication: BILIARY NEOPLASM
     Dosage: 1600 MILLIGRAM, CYCLICAL
     Route: 042
     Dates: start: 20200121, end: 20200421
  2. PARIET [Concomitant]
     Active Substance: RABEPRAZOLE SODIUM
     Indication: PRODUCT USED FOR UNKNOWN INDICATION
     Dosage: ()
     Route: 065
  3. OXALIPLATIN. [Suspect]
     Active Substance: OXALIPLATIN
     Indication: BILIARY NEOPLASM
     Dosage: 120 MILLIGRAM, CYCLICAL
     Route: 042
     Dates: start: 20200121, end: 20200421
  4. CAPECITABINE. [Suspect]
     Active Substance: CAPECITABINE
     Indication: BILIARY NEOPLASM
     Dosage: 2000 MILLIGRAM, DAILY
     Route: 048
     Dates: start: 20200610, end: 20200623
  5. ATENOLOL. [Concomitant]
     Active Substance: ATENOLOL
     Indication: PRODUCT USED FOR UNKNOWN INDICATION
     Dosage: 50 MILLIGRAM, DAILY
     Route: 065
  6. ABSTRAL COMPRESSE SUBLINGUALI DA 100 MICROGRAMMI [Concomitant]
     Indication: PRODUCT USED FOR UNKNOWN INDICATION
     Dosage: 1 DOSAGE FORM, AS NECESSARY
     Route: 065
  7. GEMCITABINE. [Suspect]
     Active Substance: GEMCITABINE
     Indication: BILIARY NEOPLASM
     Dosage: 1650 MILLIGRAM, CYCLICAL
     Route: 042
     Dates: start: 20200520, end: 20200715
  8. FOLINIC ACID [Suspect]
     Active Substance: LEUCOVORIN
     Indication: BILIARY NEOPLASM
     Dosage: 170 MILLIGRAM, CYCLICAL
     Route: 042
     Dates: start: 20200121, end: 20200421
  9. TAVOR 2,5 MG COMPRESSE [Concomitant]
     Active Substance: LORAZEPAM
     Indication: PRODUCT USED FOR UNKNOWN INDICATION
     Dosage: 0.5 DOSAGE FORM, DAILY
     Route: 065
  10. SOLDESAM [Concomitant]
     Active Substance: DEXAMETHASONE
     Indication: PRODUCT USED FOR UNKNOWN INDICATION
     Dosage: 30 GTT DROPS, DAILY
     Route: 065
  11. ARIXTRA 7.5 MG/0.6?ML SOLUTION FOR INJECTION, PRE-FILLED SYRINGE [Concomitant]
     Indication: PRODUCT USED FOR UNKNOWN INDICATION
     Dosage: ()
     Route: 065
  12. DULOXETINE HYDROCHLORIDE. [Concomitant]
     Active Substance: DULOXETINE HYDROCHLORIDE
     Indication: PRODUCT USED FOR UNKNOWN INDICATION
     Dosage: 60 MILLIGRAM, DAILY
     Route: 065
  13. MATRIFEN, 25 MICROGRAMMI/ORA CEROTTO TRANSDERMICO [Concomitant]
     Indication: PRODUCT USED FOR UNKNOWN INDICATION
     Dosage: ()
     Route: 065
  14. VALSARTAN. [Concomitant]
     Active Substance: VALSARTAN
     Indication: PRODUCT USED FOR UNKNOWN INDICATION
     Dosage: 80 MILLIGRAM, UNK
     Route: 065

REACTIONS (1)
  - Peripheral sensory neuropathy [Recovering/Resolving]

NARRATIVE: CASE EVENT DATE: 20201007
